FAERS Safety Report 5284846-6 (Version None)
Quarter: 2007Q1

REPORT INFORMATION
  Report Type: 
  Country: None (occurrence: None)
  Receive Date: 20061229
  Receipt Date: 20060726
  Transmission Date: 20070707
  Serious: Yes (Other)
  Sender: FDA-Public Use
  Company Number: PHEH2006US09268

PATIENT
  Age: 19 Year
  Sex: Female

DRUGS (13)
  1. CLOZARIL [Suspect]
     Indication: SCHIZOPHRENIA
     Dosage: 400 MG, QD, ORAL
     Route: 048
  2. ZOLOFT [Suspect]
     Dosage: 225MG, ORAL
     Route: 048
  3. TRAZODONE HCL [Suspect]
     Indication: INSOMNIA
     Dosage: 150 TO 200MG, QHS, ORAL
     Route: 048
  4. SEROQUEL [Concomitant]
  5. COGENTIN [Concomitant]
  6. METFORMIN HCL [Concomitant]
  7. LIPITOR [Concomitant]
  8. PRILOSEC [Concomitant]
  9. COLACE (DOCUSATE SODIUM) [Concomitant]
  10. MILK OF MAGNESIA TAB [Concomitant]
  11. ATIVAN [Concomitant]
  12. MAALOX (ALGELDRATE, MAGNESIUM HYDROXIDE) [Concomitant]
  13. MYLANTA (CALCIUM CARBONATE) [Concomitant]

REACTIONS (2)
  - DRUG INTERACTION [None]
  - GRAND MAL CONVULSION [None]
